FAERS Safety Report 23010539 (Version 2)
Quarter: 2023Q4

REPORT INFORMATION
  Report Type: Spontaneous
  Country: US (occurrence: US)
  Receive Date: 20230929
  Receipt Date: 20231010
  Transmission Date: 20240110
  Serious: Yes (Hospitalization, Other)
  Sender: FDA-Public Use
  Company Number: US-LUNDBECK-DKLU3067639

PATIENT

DRUGS (12)
  1. TOPIRAMATE [Interacting]
     Active Substance: TOPIRAMATE
     Indication: Epilepsy
     Dosage: 150 MILLIGRAM EVERY 12 HOURS
     Route: 065
     Dates: end: 202204
  2. TOPIRAMATE [Interacting]
     Active Substance: TOPIRAMATE
     Indication: Seizure
     Dosage: 200 MILLIGRAM EVERY 12 HOURS
     Route: 065
     Dates: start: 20220226
  3. TOPIRAMATE [Interacting]
     Active Substance: TOPIRAMATE
     Dosage: 300 MILLIGRAM, QD
     Route: 065
  4. DOXEPIN [Interacting]
     Active Substance: DOXEPIN
     Indication: Insomnia
     Dosage: 75 MILLIGRAM, QD (NIGHTLY 1.10 MG/KG)
     Route: 065
     Dates: start: 20210108
  5. DOXEPIN [Interacting]
     Active Substance: DOXEPIN
     Dosage: 150 MILLIGRAM, QD (NIGHTLY 2.21 MG/KG)
     Route: 065
     Dates: start: 20210623
  6. DOXEPIN [Interacting]
     Active Substance: DOXEPIN
     Dosage: 200 MILLIGRAM, QD (NIGHTLY 2.94 MG/KG)
     Route: 065
     Dates: start: 20211015
  7. DOXEPIN [Interacting]
     Active Substance: DOXEPIN
     Dosage: 300 MILLIGRAM, QD (NIGHTLY)
     Route: 065
     Dates: start: 20220407, end: 202204
  8. CLOBAZAM [Interacting]
     Active Substance: CLOBAZAM
     Indication: Epilepsy
     Dosage: 10 MILLIGRAM EVERY 12 HOURS
     Route: 065
     Dates: start: 20220416, end: 20220418
  9. CLOBAZAM [Interacting]
     Active Substance: CLOBAZAM
     Indication: Seizure
  10. LEVETIRACETAM [Concomitant]
     Active Substance: LEVETIRACETAM
     Indication: Epilepsy
     Dosage: 1000 MILLIGRAM EVERY 12 HOURS
     Route: 065
     Dates: start: 20211106
  11. GUANFACINE [Concomitant]
     Active Substance: GUANFACINE
     Indication: Product used for unknown indication
     Dosage: 3 MILLIGRAM, QD
     Route: 065
  12. VALPROIC ACID [Concomitant]
     Active Substance: VALPROIC ACID
     Indication: Epilepsy
     Dosage: 500 MILLIGRAM, QD
     Route: 065

REACTIONS (10)
  - Fall [Unknown]
  - Off label use [Unknown]
  - Electrocardiogram QRS complex prolonged [Recovered/Resolved]
  - Condition aggravated [Recovered/Resolved]
  - Toxicity to various agents [Recovered/Resolved]
  - Drug-genetic interaction [Recovered/Resolved]
  - Bundle branch block right [Recovered/Resolved]
  - Encephalopathy [Recovered/Resolved]
  - Drug interaction [Recovered/Resolved]
  - Somnolence [Unknown]

NARRATIVE: CASE EVENT DATE: 20210101
